FAERS Safety Report 7540244-3 (Version None)
Quarter: 2011Q2

REPORT INFORMATION
  Report Type: 
  Country: None (occurrence: None)
  Receive Date: 20110610
  Receipt Date: 20110527
  Transmission Date: 20111010
  Serious: No
  Sender: FDA-Public Use
  Company Number: US-B.I. PHARMACEUTICALS,INC./RIDGEFIELD-2011-BP-14102BP

PATIENT
  Age: 84 Year
  Sex: Male

DRUGS (8)
  1. IMDUR [Concomitant]
     Indication: CORONARY ARTERY DISEASE
     Route: 048
  2. EYE DROPS [Concomitant]
     Indication: GLAUCOMA
  3. PRADAXA [Suspect]
     Indication: ATRIAL FIBRILLATION
     Dosage: 300 MG
     Route: 048
     Dates: start: 20110301
  4. PULMICORT [Concomitant]
     Indication: CHRONIC OBSTRUCTIVE PULMONARY DISEASE
     Route: 055
  5. ATENOLOL [Concomitant]
     Indication: CORONARY ARTERY DISEASE
     Route: 048
  6. PRAVASTATIN [Concomitant]
     Indication: BLOOD CHOLESTEROL INCREASED
     Route: 048
  7. PRAVACHOL [Concomitant]
     Indication: CORONARY ARTERY DISEASE
     Route: 048
  8. AVODART [Concomitant]
     Indication: BENIGN PROSTATIC HYPERPLASIA
     Route: 048

REACTIONS (2)
  - CONTUSION [None]
  - ACTIVATED PARTIAL THROMBOPLASTIN TIME [None]
